FAERS Safety Report 13234438 (Version 4)
Quarter: 2017Q1

REPORT INFORMATION
  Report Type: Spontaneous
  Country: US (occurrence: US)
  Receive Date: 20170215
  Receipt Date: 20170316
  Transmission Date: 20170428
  Serious: Yes (Other)
  Sender: FDA-Public Use
  Company Number: US-VIFOR (INTERNATIONAL) INC.-VIT-2017-01113

PATIENT
  Age: 28 Year
  Sex: Male
  Weight: 76 kg

DRUGS (3)
  1. CLONIDINE. [Concomitant]
     Active Substance: CLONIDINE
     Route: 048
  2. MIRCERA [Suspect]
     Active Substance: METHOXY POLYETHYLENE GLYCOL-EPOETIN BETA
     Indication: NEPHROGENIC ANAEMIA
     Route: 040
     Dates: start: 20161229, end: 20170124
  3. DILANTIN [Concomitant]
     Active Substance: PHENYTOIN

REACTIONS (4)
  - Muscle tightness [Unknown]
  - Abdominal pain upper [Recovered/Resolved]
  - Seizure like phenomena [Unknown]
  - Tremor [Unknown]

NARRATIVE: CASE EVENT DATE: 20161229
